FAERS Safety Report 7522594-X (Version None)
Quarter: 2011Q2

REPORT INFORMATION
  Report Type: 
  Country: None (occurrence: None)
  Receive Date: 20110525
  Receipt Date: 20110511
  Transmission Date: 20111010
  Serious: Yes (Other)
  Sender: FDA-Public Use
  Company Number: 2011S1000715

PATIENT
  Sex: Male

DRUGS (1)
  1. LIVALO [Suspect]
     Dosage: 4 MG; ; PO
     Route: 048

REACTIONS (4)
  - BLOOD CREATINE PHOSPHOKINASE INCREASED [None]
  - WEIGHT DECREASED [None]
  - MYALGIA [None]
  - HEPATIC ENZYME ABNORMAL [None]
